FAERS Safety Report 7613244-2 (Version None)
Quarter: 2011Q3

REPORT INFORMATION
  Report Type: 
  Country: None (occurrence: None)
  Receive Date: 20110708
  Receipt Date: 20110624
  Transmission Date: 20111222
  Serious: Yes (Other)
  Sender: FDA-Public Use
  Company Number: FK201101298

PATIENT
  Age: 7 Year
  Sex: Male

DRUGS (6)
  1. ETOPOSIDE (MANUFACTUTER UNKNOWN) (ETOPOSIDE) (ETOPOSIDE0 [Suspect]
     Indication: RHABDOMYOSARCOMA
     Dosage: 1176 MG
  2. IFOSFAMIDE (MANUFACTURER UNKNOWN) (IFOSAFAMIDE) (IFOSAFAMIDE) [Suspect]
     Indication: RHABDOMYOSARCOMA
     Dosage: 18480 MG
  3. CARBOPLATIN [Suspect]
     Indication: RHABDOMYOSARCOMA
     Dosage: 840 MG
  4. VINCRISTINE [Suspect]
     Indication: RHABDOMYOSARCOMA
     Dosage: 10.92 MG
  5. EPIRUBICIN [Suspect]
     Indication: RHABDOMYOSARCOMA
     Dosage: 840 MG
  6. ACTINOMYCIN D (DACTINOMYCIN) (DACTINOMYCIN) [Suspect]
     Indication: RHABDOMYOSARCOMA
     Dosage: 2.52 MG

REACTIONS (1)
  - THYROID CANCER [None]
